FAERS Safety Report 4565107-7 (Version None)
Quarter: 2005Q1

REPORT INFORMATION
  Report Type: 
  Country: None (occurrence: None)
  Receive Date: 20050126
  Receipt Date: 20050110
  Transmission Date: 20050727
  Serious: Yes (Death, Hospitalization)
  Sender: FDA-Public Use
  Company Number: F01200403671

PATIENT
  Age: 79 Year
  Sex: Male

DRUGS (8)
  1. OXALIPLATIN [Suspect]
     Indication: COLORECTAL CANCER METASTATIC
     Dosage: 126 MG Q2W / 89 MG Q2W INTRAVENOUS NOS
     Route: 042
     Dates: start: 20041123, end: 20041123
  2. FLUOROURACIL [Suspect]
     Dosage: 592 MG Q2W / 410 MG IV BOLUS AND 685 MG IV CONTINUOUS INFUSION, INTRAVENOUS NOS
     Route: 042
     Dates: start: 20041123, end: 20041124
  3. LEUCOVORIN CALCIUM [Suspect]
     Dosage: 296 MG Q2W / 89 MG Q2W, INTRAVENOUS NOS
     Route: 042
     Dates: start: 20041123, end: 20041123
  4. (BEVACIZUMAB OR PLACEBO) - SOLUTION - 240 MG / SOLUTION - UNIT DOSE : [Suspect]
     Dosage: 240 MG Q2W INTRAVENOUS NOS
     Route: 042
     Dates: start: 20041123, end: 20041123
  5. DEXAMETHASONE [Concomitant]
  6. ONDANSETRON (ONDANSETRON HYDROCHLORIDE) [Concomitant]
  7. DOMPERIDONE [Concomitant]
  8. BACLOFEN [Concomitant]

REACTIONS (5)
  - FEBRILE NEUTROPENIA [None]
  - HYPOTENSION [None]
  - MULTI-ORGAN FAILURE [None]
  - RESPIRATORY FAILURE [None]
  - VOMITING [None]
